FAERS Safety Report 5735684-9 (Version None)
Quarter: 2008Q2

REPORT INFORMATION
  Report Type: 
  Country: None (occurrence: None)
  Receive Date: 20080512
  Receipt Date: 20080502
  Transmission Date: 20081010
  Serious: Yes (Hospitalization, Other)
  Sender: FDA-Public Use
  Company Number: GB-ABBOTT-08P-167-0450317-00

PATIENT
  Sex: Female

DRUGS (5)
  1. VALPROIC ACID [Suspect]
     Indication: PARTIAL SEIZURES
     Dates: start: 19990501
  2. VALPROIC ACID [Suspect]
     Dates: start: 19970101, end: 19990501
  3. WARFARIN SODIUM [Concomitant]
     Indication: PARTIAL SEIZURES
     Dates: end: 19990803
  4. FOLIC ACID [Concomitant]
     Indication: DRUG USE FOR UNKNOWN INDICATION
  5. TINZAPARIN [Concomitant]
     Indication: DRUG USE FOR UNKNOWN INDICATION
     Dates: start: 19990803

REACTIONS (11)
  - DEPRESSED LEVEL OF CONSCIOUSNESS [None]
  - GENERAL PHYSICAL HEALTH DETERIORATION [None]
  - INCREASED TENDENCY TO BRUISE [None]
  - INFECTION [None]
  - LETHARGY [None]
  - LIVER FUNCTION TEST ABNORMAL [None]
  - MALAISE [None]
  - PLATELET COUNT DECREASED [None]
  - PNEUMONIA [None]
  - PRECIPITATE LABOUR [None]
  - PROTEIN URINE PRESENT [None]
